FAERS Safety Report 15898543 (Version 1)
Quarter: 2019Q1

REPORT INFORMATION
  Report Type: Spontaneous
  Country: DE (occurrence: DE)
  Receive Date: 20190201
  Receipt Date: 20190201
  Transmission Date: 20190417
  Serious: Yes (Other)
  Sender: FDA-Public Use
  Company Number: DE-TEVA-2019-DE-1005002

PATIENT
  Sex: Male

DRUGS (1)
  1. SIMVASTATIN-RATIOPHARM 40 MG FILMTABLETTEN [Suspect]
     Active Substance: SIMVASTATIN
     Indication: MYOCARDIAL INFARCTION

REACTIONS (2)
  - Gait inability [Unknown]
  - Adverse event [Unknown]
